FAERS Safety Report 20309516 (Version 1)
Quarter: 2022Q1

REPORT INFORMATION
  Report Type: Spontaneous
  Country: RU (occurrence: RU)
  Receive Date: 20220107
  Receipt Date: 20220107
  Transmission Date: 20220423
  Serious: Yes (Other)
  Sender: FDA-Public Use
  Company Number: RU-JNJFOC-20211262100

PATIENT
  Age: 27 Year
  Sex: Female

DRUGS (5)
  1. OPSUMIT [Suspect]
     Active Substance: MACITENTAN
     Indication: Pulmonary arterial hypertension
     Route: 048
     Dates: start: 202012, end: 20211215
  2. TORSEMIDE [Concomitant]
     Active Substance: TORSEMIDE
  3. SPIRONOLACTONE [Concomitant]
     Active Substance: SPIRONOLACTONE
  4. SILDENAFIL [Concomitant]
     Active Substance: SILDENAFIL
  5. ILOPROST [Concomitant]
     Active Substance: ILOPROST

REACTIONS (2)
  - Transaminases increased [Unknown]
  - Lung transplant [Unknown]
